FAERS Safety Report 5041868-8 (Version None)
Quarter: 2006Q2

REPORT INFORMATION
  Report Type: 
  Country: None (occurrence: None)
  Receive Date: 20060627
  Receipt Date: 20060613
  Transmission Date: 20061013
  Serious: Yes (Other)
  Sender: FDA-Public Use
  Company Number: 2006051786

PATIENT
  Age: 62 Year
  Sex: Female
  Weight: 68.0396 kg

DRUGS (2)
  1. BEXTRA [Suspect]
     Indication: BACK INJURY
     Dosage: 10 MG (10 MG, 1 IN 1 D)
     Dates: start: 20020801, end: 20040304
  2. BEXTRA [Suspect]
     Indication: INFLAMMATION
     Dosage: 10 MG (10 MG, 1 IN 1 D)
     Dates: start: 20020801, end: 20040304

REACTIONS (5)
  - CARDIAC FAILURE CONGESTIVE [None]
  - CEREBROVASCULAR ACCIDENT [None]
  - DEPRESSION [None]
  - MITRAL VALVE DISEASE [None]
  - THROMBOSIS [None]
